FAERS Safety Report 4937525-6 (Version None)
Quarter: 2006Q1

REPORT INFORMATION
  Report Type: 
  Country: None (occurrence: None)
  Receive Date: 20060306
  Receipt Date: 20060221
  Transmission Date: 20060701
  Serious: Yes (Hospitalization)
  Sender: FDA-Public Use
  Company Number: 2006PV009003

PATIENT
  Age: 58 Year
  Sex: Female
  Weight: 81.6475 kg

DRUGS (6)
  1. BYETTA [Suspect]
     Indication: DIABETES MELLITUS
     Dosage: 5 MCG; SC
     Route: 058
     Dates: start: 20050101, end: 20050101
  2. BYETTA [Suspect]
     Indication: DIABETES MELLITUS
     Dosage: 5 MCG; SC
     Route: 058
     Dates: start: 20051001, end: 20051101
  3. GLUCOPHAGE [Concomitant]
  4. GLUCOPHAGE [Concomitant]
  5. GLUCOPHAGE [Concomitant]
  6. ACTOS [Concomitant]

REACTIONS (13)
  - ANXIETY [None]
  - BLOOD GLUCOSE INCREASED [None]
  - COMA [None]
  - DEHYDRATION [None]
  - DIARRHOEA [None]
  - DIFFICULTY IN WALKING [None]
  - DYSPNOEA [None]
  - FEELING JITTERY [None]
  - LETHARGY [None]
  - MUSCLE SPASMS [None]
  - SHOCK HYPOGLYCAEMIC [None]
  - TREMOR [None]
  - VOMITING [None]
